FAERS Safety Report 4308737-X (Version None)
Quarter: 2004Q1

REPORT INFORMATION
  Report Type: 
  Country: None (occurrence: None)
  Receive Date: 20040301
  Receipt Date: 20040301
  Transmission Date: 20041129
  Serious: Yes (Hospitalization)
  Sender: FDA-Public Use
  Company Number: None

PATIENT
  Age: 39 Year
  Sex: Female

DRUGS (1)
  1. PHENYTOIN [Suspect]

REACTIONS (3)
  - GINGIVAL HYPERPLASIA [None]
  - GINGIVAL HYPERTROPHY [None]
  - OPERATIVE HAEMORRHAGE [None]
